FAERS Safety Report 5481456-2 (Version None)
Quarter: 2007Q4

REPORT INFORMATION
  Report Type: 
  Country: None (occurrence: None)
  Receive Date: 20071010
  Receipt Date: 20071002
  Transmission Date: 20080405
  Serious: Yes (Death)
  Sender: FDA-Public Use
  Company Number: US-JNJFOC-20060501221

PATIENT
  Sex: Female
  Weight: 30 kg

DRUGS (14)
  1. CHILDREN'S MOTRIN [Suspect]
     Dosage: AS NECESSARY
  2. CHILDREN'S MOTRIN [Suspect]
     Indication: DRUG USE FOR UNKNOWN INDICATION
  3. ADVIL LIQUI-GELS [Suspect]
     Indication: DRUG USE FOR UNKNOWN INDICATION
  4. FLAGYL [Suspect]
     Indication: CLOSTRIDIAL INFECTION
  5. DILANTIN [Suspect]
     Dosage: REDUCED TO SUB-THERAPEUTIC LEVELS
  6. DILANTIN [Suspect]
     Indication: CONVULSION
  7. COLACE [Concomitant]
  8. PEPCID [Concomitant]
  9. DECADRON [Concomitant]
  10. TYLENOL (CAPLET) [Concomitant]
  11. PROVENTIL [Concomitant]
  12. VANCOMYCIN [Concomitant]
     Indication: PNEUMONIA
  13. CEFEPIME [Concomitant]
     Indication: PNEUMONIA
  14. CEFEPIME [Concomitant]
     Indication: PYREXIA

REACTIONS (25)
  - ABDOMINAL INFECTION [None]
  - ACUTE RESPIRATORY DISTRESS SYNDROME [None]
  - ASCITES [None]
  - CARDIAC ARREST [None]
  - CARDIAC FAILURE [None]
  - CHOLELITHIASIS [None]
  - CORNEAL ABRASION [None]
  - DIABETES MELLITUS [None]
  - DISSEMINATED INTRAVASCULAR COAGULATION [None]
  - HAEMATURIA [None]
  - HAEMODIALYSIS [None]
  - HEPATOMEGALY [None]
  - HYPOTHERMIA [None]
  - METABOLIC ACIDOSIS [None]
  - MULTI-ORGAN FAILURE [None]
  - PERIPHERAL ISCHAEMIA [None]
  - PSEUDOMONAS INFECTION [None]
  - RENAL FAILURE [None]
  - RESPIRATORY FAILURE [None]
  - SEPTIC SHOCK [None]
  - STENOTROPHOMONAS INFECTION [None]
  - SUBCUTANEOUS EMPHYSEMA [None]
  - SYMBLEPHARON [None]
  - TOXIC EPIDERMAL NECROLYSIS [None]
  - WOUND SECRETION [None]
